FAERS Safety Report 6956355-7 (Version None)
Quarter: 2010Q3

REPORT INFORMATION
  Report Type: 
  Country: None (occurrence: None)
  Receive Date: 20100830
  Receipt Date: 20100824
  Transmission Date: 20110219
  Serious: Yes (Death, Hospitalization)
  Sender: FDA-Public Use
  Company Number: A0863082A

PATIENT
  Age: 82 Year
  Sex: Male

DRUGS (3)
  1. ADVAIR DISKUS 100/50 [Suspect]
     Indication: CHRONIC OBSTRUCTIVE PULMONARY DISEASE
     Route: 055
  2. AVODART [Suspect]
  3. VENTOLIN [Suspect]
     Indication: EMPHYSEMA

REACTIONS (12)
  - ATRIAL FIBRILLATION [None]
  - CARDIAC DISORDER [None]
  - DYSPNOEA [None]
  - ILL-DEFINED DISORDER [None]
  - INHALATION THERAPY [None]
  - INSOMNIA [None]
  - INTENSIVE CARE [None]
  - MYOCARDIAL INFARCTION [None]
  - PALLIATIVE CARE [None]
  - PNEUMONIA [None]
  - RESPIRATORY THERAPY [None]
  - RESTLESSNESS [None]
